FAERS Safety Report 5370814-2 (Version None)
Quarter: 2007Q2

REPORT INFORMATION
  Report Type: 
  Country: None (occurrence: None)
  Receive Date: 20070626
  Receipt Date: 20070620
  Transmission Date: 20071010
  Serious: Yes (Other)
  Sender: FDA-Public Use
  Company Number: ZA-ABBOTT-07P-143-0372161-00

PATIENT
  Sex: Female

DRUGS (8)
  1. EPILIM SOLUTION [Suspect]
     Indication: CONVULSION
     Route: 042
     Dates: start: 20070515, end: 20070604
  2. EPILIM SOLUTION [Suspect]
     Route: 048
     Dates: start: 20070605
  3. EPILIM TABLET PR [Suspect]
     Indication: CONVULSION
     Route: 048
     Dates: start: 20070605
  4. DEXAMETHASONE 0.5MG TAB [Concomitant]
     Indication: BRAIN OEDEMA
     Route: 065
     Dates: start: 20070515
  5. DIHYDROCODEINE BITARTRATE INJ [Concomitant]
     Indication: PAIN
     Dates: start: 20070515
  6. DILTIAZEM [Concomitant]
  7. AMLODIPINE [Concomitant]
  8. PERINDOPRIL [Concomitant]

REACTIONS (3)
  - CONDITION AGGRAVATED [None]
  - HAEMORRHAGE [None]
  - HYPERTENSION [None]
